FAERS Safety Report 16189653 (Version 1)
Quarter: 2019Q2

REPORT INFORMATION
  Report Type: Spontaneous
  Country: US (occurrence: US)
  Receive Date: 20190411
  Receipt Date: 20190411
  Transmission Date: 20190711
  Serious: Yes (Hospitalization)
  Sender: FDA-Public Use
  Company Number: None

PATIENT
  Age: 63 Year
  Sex: Female

DRUGS (18)
  1. LEVETIRACETARAM 500MG ER TABLETS [Concomitant]
     Dates: start: 20190227
  2. OMPERAZOLE 40MG CAPSULES [Concomitant]
     Dates: start: 20190110
  3. OMEPRAZOLE 20MG CAPSULES [Concomitant]
     Dates: start: 20190227
  4. DOXAZOSIN 2MG TABLETS [Concomitant]
     Dates: start: 20190227
  5. AMITRIPTYLINE 75MG TABLETS [Concomitant]
     Dates: start: 20180908
  6. AFINITOR [Suspect]
     Active Substance: EVEROLIMUS
     Indication: BREAST CANCER
     Route: 048
  7. VITAMIN D3 CAPSULES 50,000 IU [Concomitant]
  8. HYDROCODONE/APAP 5/325MG [Concomitant]
     Dates: start: 20190227
  9. LEVOTHYROXINE 50MCG TABLETS [Concomitant]
     Dates: start: 20190408
  10. PROMETHAZINE 25MG/ML INJECTION [Concomitant]
     Dates: start: 20190227
  11. PROPANTHELIN 15MG TABLETS [Concomitant]
     Dates: start: 20181231
  12. AFINITOR 5MG TABLETS [Concomitant]
     Dates: start: 20190227
  13. KEPPRA 500MG TABLETS [Concomitant]
     Dates: start: 20190227
  14. GABAPENTIN 300MG CAPSULES [Concomitant]
     Active Substance: GABAPENTIN
     Dates: start: 20181208
  15. ONDANSETRON 8MG TABLETS [Concomitant]
     Active Substance: ONDANSETRON HYDROCHLORIDE
     Dates: start: 20190322, end: 20190408
  16. FASLODEX 250/5ML INJECTION [Concomitant]
     Dates: start: 20180426
  17. BYSTOLIC 2.5MG TABLETS [Concomitant]
     Dates: start: 20190227
  18. LETROZOLE 2.5MG TABLETS [Concomitant]
     Active Substance: LETROZOLE
     Dates: start: 20190313

REACTIONS (3)
  - Blood pressure decreased [None]
  - Oxygen saturation decreased [None]
  - Vital functions abnormal [None]

NARRATIVE: CASE EVENT DATE: 20190405
